FAERS Safety Report 11290653 (Version 1)
Quarter: 2015Q3

REPORT INFORMATION
  Report Type: Report from Study
  Country: JP (occurrence: None)
  Receive Date: 20150720
  Receipt Date: 20150720
  Transmission Date: 20151125
  Serious: Yes (Other)
  Sender: FDA-Public Use
  Company Number: 2014MPI00987

PATIENT
  Age: 20 Year
  Sex: Male
  Weight: 60.1 kg

DRUGS (5)
  1. CORTICOSTEROIDS [Concomitant]
     Active Substance: CORTICOSTEROID NOS
  2. ANTIHISTAMINES [Concomitant]
     Active Substance: ANTIHISTAMINES NOS
  3. ADCETRIS [Suspect]
     Active Substance: BRENTUXIMAB VEDOTIN
     Indication: HODGKIN^S DISEASE
     Dosage: 1.8 MG/KG, Q12D, IV DRIP
     Route: 041
     Dates: start: 20140430, end: 20140523
  4. BAKTAR [Concomitant]
     Active Substance: SULFAMETHOXAZOLE\TRIMETHOPRIM
  5. ITRIZOLE [Concomitant]
     Active Substance: ITRACONAZOLE

REACTIONS (3)
  - Leukopenia [None]
  - Neutropenia [None]
  - Platelet count decreased [None]

NARRATIVE: CASE EVENT DATE: 20140611
